FAERS Safety Report 5052527-X (Version None)
Quarter: 2006Q3

REPORT INFORMATION
  Report Type: 
  Country: None (occurrence: None)
  Receive Date: 20060711
  Receipt Date: 20060616
  Transmission Date: 20061208
  Serious: Yes (Congenital Anomaly)
  Sender: FDA-Public Use
  Company Number: EWC041141570

PATIENT
  Age: 12 Week
  Sex: Female

DRUGS (6)
  1. ZYPREXA [Suspect]
     Dosage: TRANSPLACENTAL
     Route: 064
     Dates: end: 20040525
  2. LEGOFER (FERRIPROTINATE) [Concomitant]
  3. FERRUM (FERROUS FUMARATE) [Concomitant]
  4. FILICINE (FOLIC ACID) [Concomitant]
  5. TROPHICARD [Concomitant]
  6. CALCIUM GLUCONATE [Concomitant]

REACTIONS (4)
  - CAESAREAN SECTION [None]
  - DRUG EXPOSURE DURING PREGNANCY [None]
  - HIP DYSPLASIA [None]
  - UNINTENDED PREGNANCY [None]
